FAERS Safety Report 12200157 (Version 1)
Quarter: 2016Q1

REPORT INFORMATION
  Report Type: Spontaneous
  Country: US (occurrence: US)
  Receive Date: 20160322
  Receipt Date: 20160322
  Transmission Date: 20160526
  Serious: Yes (Other)
  Sender: FDA-Public Use
  Company Number: US-SUNOVION-2016SUN000684

PATIENT
  Sex: Male

DRUGS (2)
  1. LITHIUM. [Concomitant]
     Active Substance: LITHIUM
  2. LATUDA [Suspect]
     Active Substance: LURASIDONE HYDROCHLORIDE
     Dosage: UNK
     Route: 048

REACTIONS (6)
  - Nervous system disorder [Unknown]
  - Swollen tongue [Unknown]
  - Dyskinesia [Unknown]
  - Pharyngeal oedema [Unknown]
  - Pain [Unknown]
  - Musculoskeletal stiffness [Unknown]
